FAERS Safety Report 17284149 (Version 1)
Quarter: 2020Q1

REPORT INFORMATION
  Report Type: Spontaneous
  Country: US (occurrence: US)
  Receive Date: 20200117
  Receipt Date: 20200117
  Transmission Date: 20200409
  Serious: Yes (Death, Hospitalization, Other)
  Sender: FDA-Public Use
  Company Number: US-BAYER-2020-005136

PATIENT
  Age: 68 Year
  Sex: Male

DRUGS (3)
  1. GEMZAR [Suspect]
     Active Substance: GEMCITABINE HYDROCHLORIDE
     Indication: B-CELL LYMPHOMA
     Dosage: 1930 MG
     Route: 042
     Dates: start: 20160712, end: 20160830
  2. BAYER LOW DOSE [Suspect]
     Active Substance: ASPIRIN
     Indication: CARDIOVASCULAR EVENT PROPHYLAXIS
     Dosage: 1 DF
     Route: 048
     Dates: start: 20061231, end: 20160905
  3. IMBRUVICA [Suspect]
     Active Substance: IBRUTINIB
     Indication: B-CELL LYMPHOMA
     Dosage: 420 MG, QD
     Route: 048
     Dates: start: 20160205, end: 20160830

REACTIONS (6)
  - Gastrointestinal haemorrhage [Recovered/Resolved]
  - Gastrointestinal mucosal disorder [Recovered/Resolved]
  - Death [Fatal]
  - Splenomegaly [Unknown]
  - Abnormal loss of weight [Unknown]
  - Blood lactate dehydrogenase increased [Unknown]

NARRATIVE: CASE EVENT DATE: 20160905
